FAERS Safety Report 20467924 (Version 2)
Quarter: 2022Q1

REPORT INFORMATION
  Report Type: Spontaneous
  Country: US (occurrence: US)
  Receive Date: 20220214
  Receipt Date: 20220223
  Transmission Date: 20220423
  Serious: No
  Sender: FDA-Public Use
  Company Number: US-AIMMUNE THERAPEUTICS, INC.-2022AIMT00079

PATIENT

DRUGS (1)
  1. PALFORZIA [Suspect]
     Active Substance: PEANUT
     Indication: Food allergy
     Dosage: UNK, 1X/DAY
     Route: 048

REACTIONS (3)
  - Exposure to SARS-CoV-2 [Unknown]
  - Drug dose titration not performed [Unknown]
  - Abdominal discomfort [Unknown]
